FAERS Safety Report 13424985 (Version 3)
Quarter: 2019Q1

REPORT INFORMATION
  Report Type: Spontaneous
  Country: JP (occurrence: JP)
  Receive Date: 20170410
  Receipt Date: 20190118
  Transmission Date: 20190417
  Serious: Yes (Hospitalization, Other)
  Sender: FDA-Public Use
  Company Number: JP-BRISTOL-MYERS SQUIBB COMPANY-BMS-2017-030534

PATIENT
  Age: 79 Year
  Sex: Male

DRUGS (1)
  1. OPDIVO [Suspect]
     Active Substance: NIVOLUMAB
     Indication: NON-SMALL CELL LUNG CANCER RECURRENT
     Dosage: 200 MG, Q2WK
     Route: 041
     Dates: start: 20161129

REACTIONS (4)
  - Adrenal insufficiency [Recovered/Resolved]
  - Pituitary haemorrhage [Recovered/Resolved]
  - Transfusion [Unknown]
  - Growth hormone deficiency [Unknown]

NARRATIVE: CASE EVENT DATE: 2017
